FAERS Safety Report 13648360 (Version 3)
Quarter: 2018Q1

REPORT INFORMATION
  Report Type: Spontaneous
  Country: US (occurrence: US)
  Receive Date: 20170613
  Receipt Date: 20180104
  Transmission Date: 20180508
  Serious: Yes (Other)
  Sender: FDA-Public Use
  Company Number: US-BAYER-2017-112109

PATIENT
  Age: 20 Year
  Sex: Female

DRUGS (1)
  1. SKYLA [Suspect]
     Active Substance: LEVONORGESTREL
     Indication: CONTRACEPTION
     Dosage: 14 MCG/24HR, CONT
     Route: 015
     Dates: start: 20170517

REACTIONS (4)
  - Rash [Unknown]
  - Post procedural haemorrhage [Unknown]
  - Genital haemorrhage [None]
  - Menstruation irregular [Unknown]

NARRATIVE: CASE EVENT DATE: 2017
